FAERS Safety Report 4654871-4 (Version None)
Quarter: 2005Q2

REPORT INFORMATION
  Report Type: 
  Country: None (occurrence: None)
  Receive Date: 20050506
  Receipt Date: 20040210
  Transmission Date: 20051028
  Serious: No
  Sender: FDA-Public Use
  Company Number: FR-MERCK-0402FRA00023B1

PATIENT
  Age: 0 Day
  Sex: Male
  Weight: 2 kg

DRUGS (5)
  1. SINGULAIR [Suspect]
     Indication: ASTHMA
     Dates: start: 20030101, end: 20040209
  2. SINGULAIR [Suspect]
     Dates: start: 20040910
  3. FLUTICASONE PROPIONATE [Concomitant]
     Indication: ASTHMA
  4. FORMOTEROL FUMARATE [Concomitant]
     Indication: ASTHMA
  5. FEXOFENADINE HYDROCHLORIDE [Concomitant]
     Indication: RHINITIS ALLERGIC

REACTIONS (2)
  - PREMATURE BABY [None]
  - SMALL FOR DATES BABY [None]
